FAERS Safety Report 9300842 (Version 1)
Quarter: 2013Q2

REPORT INFORMATION
  Report Type: Report from Study
  Country: BR (occurrence: BR)
  Receive Date: 20130521
  Receipt Date: 20130521
  Transmission Date: 20140414
  Serious: Yes (Other)
  Sender: FDA-Public Use
  Company Number: PHHY2012BR107421

PATIENT
  Sex: Male
  Weight: 22 kg

DRUGS (1)
  1. OMNITROPE [Suspect]
     Indication: GROWTH RETARDATION
     Dosage: 0.5 MG, DAILY
     Route: 058
     Dates: start: 20121108, end: 201212

REACTIONS (6)
  - Eye allergy [Recovered/Resolved]
  - Lacrimation increased [Recovered/Resolved]
  - Eye swelling [Recovered/Resolved]
  - Ocular hyperaemia [Recovered/Resolved]
  - Eye irritation [Recovered/Resolved]
  - Injection site haemorrhage [Recovered/Resolved]
